FAERS Safety Report 14499232 (Version 1)
Quarter: 2018Q1

REPORT INFORMATION
  Report Type: Spontaneous
  Country: US (occurrence: US)
  Receive Date: 20180207
  Receipt Date: 20180207
  Transmission Date: 20180509
  Serious: No
  Sender: FDA-Public Use
  Company Number: US-JAZZ-2017-US-009927

PATIENT
  Age: 41 Year
  Sex: Male

DRUGS (3)
  1. PRIALT [Suspect]
     Active Substance: ZICONOTIDE ACETATE
     Dosage: .083?G, QH
     Route: 037
     Dates: start: 20170727
  2. PRIALT [Suspect]
     Active Substance: ZICONOTIDE ACETATE
     Dosage: 0.15 ?G, QH
     Route: 037
     Dates: start: 20170718
  3. PRIALT [Suspect]
     Active Substance: ZICONOTIDE ACETATE
     Indication: PAIN
     Dosage: 0.083 ?G, QH
     Route: 037

REACTIONS (2)
  - Swelling [Unknown]
  - Device issue [Unknown]

NARRATIVE: CASE EVENT DATE: 201705
